FAERS Safety Report 22650066 (Version 1)
Quarter: 2023Q2

REPORT INFORMATION
  Report Type: Other
  Country: BE (occurrence: None)
  Receive Date: 20230628
  Receipt Date: 20230628
  Transmission Date: 20230722
  Serious: Yes (Other)
  Sender: FDA-Public Use
  Company Number: BE-ROCHE-3375629

PATIENT
  Age: 54 Year
  Sex: Male

DRUGS (6)
  1. BEVACIZUMAB [Suspect]
     Active Substance: BEVACIZUMAB
     Indication: Hereditary haemorrhagic telangiectasia
     Route: 042
  2. BEVACIZUMAB [Suspect]
     Active Substance: BEVACIZUMAB
     Indication: Gastrointestinal haemorrhage
  3. TRANEXAMIC ACID [Concomitant]
     Active Substance: TRANEXAMIC ACID
  4. IRON [Concomitant]
     Active Substance: IRON
     Dosage: IRON INFUSIONS 6 MONTHS PRIOR TO BEVACIZUMAB (MG ELEMENTAL IRON)
     Route: 042
  5. IRON [Concomitant]
     Active Substance: IRON
     Dosage: IRON INFUSIONS 6 MONTHS AFTER INDUCTION THERAPY WITH BEVACIZUMAB?(MG ELEMENTAL IRON)
     Route: 042
  6. THALIDOMIDE [Concomitant]
     Active Substance: THALIDOMIDE

REACTIONS (2)
  - Hypertension [Unknown]
  - Off label use [Unknown]
